FAERS Safety Report 6103485-8 (Version None)
Quarter: 2009Q1

REPORT INFORMATION
  Report Type: 
  Country: None (occurrence: None)
  Receive Date: 20090305
  Receipt Date: 20090224
  Transmission Date: 20090719
  Serious: Yes (Life-Threatening)
  Sender: FDA-Public Use
  Company Number: JP-WYE-H08066909

PATIENT
  Sex: Male
  Weight: 56 kg

DRUGS (9)
  1. ANCARON [Suspect]
     Indication: VENTRICULAR TACHYCARDIA
     Route: 048
     Dates: start: 20090123, end: 20090126
  2. BLOPRESS [Concomitant]
     Indication: CONGESTIVE CARDIOMYOPATHY
     Dosage: 1 UNIT EVERY 1 DAY
     Route: 048
     Dates: end: 20090126
  3. LASIX [Concomitant]
     Indication: CONGESTIVE CARDIOMYOPATHY
     Dosage: 1 UNIT EVERY 1 DAY
     Route: 048
     Dates: end: 20090126
  4. TOUGHMAC E [Concomitant]
     Dosage: 2 UNIT EVERY 1 DAY
     Route: 048
     Dates: end: 20090126
  5. WARFARIN SODIUM [Concomitant]
     Indication: ATRIAL FLUTTER
     Dosage: 1.5 UNIT EVERY 1 DAY
     Route: 048
     Dates: end: 20090126
  6. TENORMIN [Concomitant]
     Indication: CONGESTIVE CARDIOMYOPATHY
     Dosage: 2 UNIT EVERY 1 DAY
     Route: 048
     Dates: end: 20090126
  7. GASMOTIN [Concomitant]
     Indication: GASTRITIS
     Dosage: 2 UNIT EVERY 1 DAY
     Route: 048
     Dates: end: 20090126
  8. ANCARON [Concomitant]
     Dosage: 150 MG (FREQUENCY UNSPECIFIED)
     Route: 042
  9. ZYLORIC [Concomitant]
     Indication: HYPERURICAEMIA
     Dosage: 1 UNIT EVERY 1 DAY
     Route: 048
     Dates: end: 20090126

REACTIONS (4)
  - ACIDOSIS [None]
  - CARDIOGENIC SHOCK [None]
  - DISSEMINATED INTRAVASCULAR COAGULATION [None]
  - LIVER DISORDER [None]
